FAERS Safety Report 25785267 (Version 2)
Quarter: 2025Q3

REPORT INFORMATION
  Report Type: Spontaneous
  Country: US (occurrence: US)
  Receive Date: 20250910
  Receipt Date: 20250924
  Transmission Date: 20251020
  Serious: No
  Sender: Haleon PLC
  Company Number: US-HALEON-2261957

PATIENT
  Age: 37 Year
  Sex: Female

DRUGS (1)
  1. TUMS CHEWY BITES [Suspect]
     Active Substance: CALCIUM CARBONATE
     Indication: Product used for unknown indication
     Dates: start: 20250825

REACTIONS (4)
  - Mouth haemorrhage [Not Recovered/Not Resolved]
  - Oral pain [Not Recovered/Not Resolved]
  - Exposure during pregnancy [Unknown]
  - Tooth fracture [Not Recovered/Not Resolved]

NARRATIVE: CASE EVENT DATE: 20250825
